FAERS Safety Report 5823141-0 (Version None)
Quarter: 2008Q3

REPORT INFORMATION
  Report Type: 
  Country: None (occurrence: None)
  Receive Date: 20080725
  Receipt Date: 20080717
  Transmission Date: 20090109
  Serious: Yes (Other)
  Sender: FDA-Public Use
  Company Number: PHHY2008DE14372

PATIENT
  Sex: Male

DRUGS (1)
  1. ZOLEDRONIC ACID [Suspect]
     Dosage: 5 MG ONCE
     Route: 042
     Dates: start: 20080215, end: 20080215

REACTIONS (2)
  - OSTEONECROSIS [None]
  - TOOTH LOSS [None]
